FAERS Safety Report 25218318 (Version 7)
Quarter: 2025Q4

REPORT INFORMATION
  Report Type: Spontaneous
  Country: JP (occurrence: JP)
  Receive Date: 20250421
  Receipt Date: 20251012
  Transmission Date: 20260117
  Serious: Yes (Hospitalization, Other)
  Sender: AMGEN
  Company Number: JP-AMGEN-JPNSP2025076084

PATIENT
  Age: 83 Year
  Sex: Female
  Weight: 38 kg

DRUGS (9)
  1. TEPEZZA [Suspect]
     Active Substance: TEPROTUMUMAB-TRBW
     Indication: Endocrine ophthalmopathy
     Dosage: UNK, (INTRAVENOUS DRIP INFUSION)
     Route: 040
     Dates: start: 20250303
  2. TEPEZZA [Suspect]
     Active Substance: TEPROTUMUMAB-TRBW
     Dosage: 20 MILLIGRAM/KILOGRAM, Q3WK (SECOND INFUSION, INTRAVENOUS DRIP INFUSION)
     Route: 040
     Dates: start: 20250324, end: 20250324
  3. INSULIN NOS [Suspect]
     Active Substance: INSULIN NOS
     Indication: Type 2 diabetes mellitus
     Dosage: UNK
     Route: 065
  4. JARDIANCE [Concomitant]
     Active Substance: EMPAGLIFLOZIN
     Indication: Type 2 diabetes mellitus
     Dosage: 10 MILLIGRAM, QD
     Route: 065
     Dates: end: 20250414
  5. INSULIN GLARGINE [Concomitant]
     Active Substance: INSULIN GLARGINE
     Indication: Type 2 diabetes mellitus
     Dosage: 14 UNIT, QD
     Route: 065
  6. TRULICITY [Concomitant]
     Active Substance: DULAGLUTIDE
     Indication: Type 2 diabetes mellitus
     Dosage: 0.75 MILLIGRAM, QWK (ATEOS)
     Route: 065
  7. PROPYLTHIOURACIL [Concomitant]
     Active Substance: PROPYLTHIOURACIL
     Indication: Graves^ disease
     Dosage: 150 MILLIGRAM, TID
     Route: 065
  8. METHIMAZOLE [Concomitant]
     Active Substance: METHIMAZOLE
     Indication: Graves^ disease
     Dosage: UNK
     Route: 065
  9. IMEGLIMIN [Concomitant]
     Active Substance: IMEGLIMIN
     Dosage: 2000 MILLIGRAM, QD
     Route: 065

REACTIONS (11)
  - Hyperglycaemia [Recovering/Resolving]
  - Decreased appetite [Recovered/Resolved]
  - Haematocrit increased [Unknown]
  - Haemoglobin increased [Unknown]
  - Red blood cell count increased [Unknown]
  - Neutrophil count increased [Unknown]
  - Eosinophil count decreased [Unknown]
  - Blood urea increased [Unknown]
  - Alanine aminotransferase increased [Unknown]
  - Blood albumin increased [Unknown]
  - Glycosylated haemoglobin increased [Unknown]

NARRATIVE: CASE EVENT DATE: 20250101
